FAERS Safety Report 7192799-9 (Version None)
Quarter: 2010Q4

REPORT INFORMATION
  Report Type: 
  Country: None (occurrence: None)
  Receive Date: 20101223
  Receipt Date: 20100827
  Transmission Date: 20110411
  Serious: No
  Sender: FDA-Public Use
  Company Number: US-AMGEN-TCS434570

PATIENT

DRUGS (2)
  1. ENBREL [Suspect]
     Indication: PSORIATIC ARTHROPATHY
     Dosage: 50 MG, 2 TIMES/WK
     Route: 058
     Dates: start: 20030401
  2. ENBREL [Suspect]
     Indication: PSORIASIS

REACTIONS (6)
  - ARTHRALGIA [None]
  - BACK PAIN [None]
  - DRUG INEFFECTIVE [None]
  - JAW DISORDER [None]
  - OSTEOARTHRITIS [None]
  - PSORIATIC ARTHROPATHY [None]
